FAERS Safety Report 13847361 (Version 2)
Quarter: 2017Q3

REPORT INFORMATION
  Report Type: Report from Study
  Country: US (occurrence: US)
  Receive Date: 20170808
  Receipt Date: 20170814
  Transmission Date: 20171127
  Serious: No
  Sender: FDA-Public Use
  Company Number: US-AMGEN-USASL2017118273

PATIENT
  Age: 53 Year
  Sex: Female

DRUGS (1)
  1. ENBREL [Suspect]
     Active Substance: ETANERCEPT
     Indication: RHEUMATOID ARTHRITIS
     Dosage: 50 MG, QWK
     Route: 065
     Dates: start: 201702

REACTIONS (6)
  - Pruritus [Unknown]
  - Feeling hot [Unknown]
  - Papule [Unknown]
  - Rash [Unknown]
  - Hyperhidrosis [Unknown]
  - Skin irritation [Unknown]

NARRATIVE: CASE EVENT DATE: 2017
